FAERS Safety Report 14841742 (Version 1)
Quarter: 2018Q2

REPORT INFORMATION
  Report Type: Spontaneous
  Country: IT (occurrence: IT)
  Receive Date: 20180503
  Receipt Date: 20180503
  Transmission Date: 20180711
  Serious: Yes (Hospitalization)
  Sender: FDA-Public Use
  Company Number: IT-AUROBINDO-AUR-APL-2018-022479

PATIENT
  Age: 95 Year
  Sex: Male

DRUGS (6)
  1. AMIODARONE TABLETS [Suspect]
     Active Substance: AMIODARONE
     Indication: ARRHYTHMIA
     Dosage: 200 MILLIGRAM, DAILY
     Route: 048
     Dates: start: 20180101, end: 20180217
  2. LANSOPRAZOLE. [Concomitant]
     Active Substance: LANSOPRAZOLE
     Indication: PRODUCT USED FOR UNKNOWN INDICATION
     Route: 065
  3. MIRTAZAPINE TABLET [Suspect]
     Active Substance: MIRTAZAPINE
     Indication: MAJOR DEPRESSION
     Dosage: 30 MILLIGRAM, DAILY
     Route: 048
     Dates: start: 20180207, end: 20180217
  4. FLUXUM [Concomitant]
     Active Substance: PARNAPARIN SODIUM
     Indication: PRODUCT USED FOR UNKNOWN INDICATION
     Route: 065
  5. FLUXUM [Concomitant]
     Active Substance: PARNAPARIN SODIUM
     Dosage: ()
  6. LANSOPRAZOLE. [Concomitant]
     Active Substance: LANSOPRAZOLE
     Dosage: ()

REACTIONS (3)
  - Pancytopenia [Unknown]
  - Leukopenia [Unknown]
  - Hyponatraemia [Unknown]

NARRATIVE: CASE EVENT DATE: 20180217
